FAERS Safety Report 8363024-8 (Version None)
Quarter: 2012Q2

REPORT INFORMATION
  Report Type: 
  Country: None (occurrence: None)
  Receive Date: 20120516
  Receipt Date: 20111013
  Transmission Date: 20120825
  Serious: No
  Sender: FDA-Public Use
  Company Number: US-ALEXION-A201101558

PATIENT
  Sex: Female

DRUGS (4)
  1. SOLIRIS [Suspect]
     Indication: PAROXYSMAL NOCTURNAL HAEMOGLOBINURIA
     Dosage: 900 MG Q3W
     Route: 042
     Dates: start: 20070521
  2. WARFARIN SODIUM [Concomitant]
     Indication: PROPHYLAXIS
     Dosage: 5 MG, QD EXCEPT 7.5 MG ON MON AND FRI
     Route: 048
     Dates: start: 20101117
  3. SALSALATE [Concomitant]
     Indication: ARTHRITIS
     Dosage: 500 MG, BID
     Dates: start: 20110318
  4. WARFARIN SODIUM [Concomitant]
     Dosage: 2.5 MG UNK

REACTIONS (15)
  - NASOPHARYNGITIS [None]
  - NUCLEAR MAGNETIC RESONANCE IMAGING ABNORMAL [None]
  - GAIT DISTURBANCE [None]
  - ARTHRALGIA [None]
  - INFLUENZA [None]
  - TENDON DISORDER [None]
  - CONTUSION [None]
  - BACK INJURY [None]
  - FALL [None]
  - PROTHROMBIN TIME PROLONGED [None]
  - FRACTURED SACRUM [None]
  - COUGH [None]
  - OSTEONECROSIS [None]
  - BACK PAIN [None]
  - BURSITIS [None]
